FAERS Safety Report 10745634 (Version 1)
Quarter: 2015Q1

REPORT INFORMATION
  Report Type: Spontaneous
  Country: US (occurrence: None)
  Receive Date: 20150127
  Receipt Date: 20150127
  Transmission Date: 20150721
  Serious: No
  Sender: FDA-Public Use
  Company Number: None

PATIENT
  Age: 61 Year
  Sex: Female

DRUGS (12)
  1. ATIVAN [Concomitant]
     Active Substance: LORAZEPAM
  2. TRAMADOL [Concomitant]
     Active Substance: TRAMADOL
  3. NUVIGIL [Concomitant]
     Active Substance: ARMODAFINIL
  4. VITAMIN B12 [Concomitant]
     Active Substance: CYANOCOBALAMIN
  5. NORTRIPTYLINE [Concomitant]
     Active Substance: NORTRIPTYLINE
  6. AMPYRA [Suspect]
     Active Substance: DALFAMPRIDINE
     Indication: MULTIPLE SCLEROSIS
     Route: 048
     Dates: start: 201102, end: 201404
  7. HYDROMORPHONE [Concomitant]
     Active Substance: HYDROMORPHONE
  8. LISINOPRIL. [Concomitant]
     Active Substance: LISINOPRIL
  9. BACLOFEN. [Concomitant]
     Active Substance: BACLOFEN
  10. QUAIFENESIN [Concomitant]
  11. PROZAC [Concomitant]
     Active Substance: FLUOXETINE HYDROCHLORIDE
  12. AVONEX [Concomitant]
     Active Substance: INTERFERON BETA-1A

REACTIONS (2)
  - Urinary tract infection [None]
  - Bacterial test positive [None]

NARRATIVE: CASE EVENT DATE: 20140402
